FAERS Safety Report 4550261-3 (Version None)
Quarter: 2004Q4

REPORT INFORMATION
  Report Type: 
  Country: None (occurrence: None)
  Receive Date: 20041227
  Receipt Date: 20041108
  Transmission Date: 20050328
  Serious: No
  Sender: FDA-Public Use
  Company Number: 04P-163-0280522-00

PATIENT
  Age: 44 Year
  Sex: Male
  Weight: 68.9467 kg

DRUGS (17)
  1. HUMIRA [Suspect]
     Indication: RHEUMATOID ARTHRITIS
     Dosage: 40 MG, 1 IN 1 WK, SUBCUTANEOUS;  40 MG, 1 IN 2 WK, SUBCUTANEOUS
     Route: 058
     Dates: start: 20040324, end: 20040608
  2. HUMIRA [Suspect]
     Indication: RHEUMATOID ARTHRITIS
     Dosage: 40 MG, 1 IN 1 WK, SUBCUTANEOUS;  40 MG, 1 IN 2 WK, SUBCUTANEOUS
     Route: 058
     Dates: start: 20040608
  3. PREDNISONE [Concomitant]
  4. ESOMEPRAZOLE [Concomitant]
  5. MISOPROSTOL [Concomitant]
  6. FOLIC ACID [Concomitant]
  7. IRON [Concomitant]
  8. MULTI-VITAMINS [Concomitant]
  9. CALCIUM GLUCONATE [Concomitant]
  10. RISEDRONATE SODIUM [Concomitant]
  11. NAPROXEN [Concomitant]
  12. METHOTREXATE [Concomitant]
  13. PREDNISONE DROPS [Concomitant]
  14. TELMISARTAN [Concomitant]
  15. ACETAZOLAMIDE [Concomitant]
  16. EYE DROPS [Concomitant]
  17. ROFECOXIB [Concomitant]

REACTIONS (3)
  - BLOOD PRESSURE INCREASED [None]
  - HEPATIC ENZYME INCREASED [None]
  - PARAESTHESIA [None]
